FAERS Safety Report 24303976 (Version 1)
Quarter: 2024Q3

REPORT INFORMATION
  Report Type: Spontaneous
  Country: IN (occurrence: IN)
  Receive Date: 20240910
  Receipt Date: 20240910
  Transmission Date: 20241017
  Serious: Yes (Death, Hospitalization)
  Sender: CIPHER
  Company Number: IN-CIPHER-2024-IN-000001

PATIENT
  Age: 23 Year
  Sex: Female

DRUGS (6)
  1. TRAMADOL HYDROCHLORIDE [Suspect]
     Active Substance: TRAMADOL HYDROCHLORIDE
     Indication: Arthralgia
     Route: 042
  2. diclofenac 50 mg and paracetamol 325 mg [Concomitant]
     Indication: Arthralgia
  3. ACETAMINOPHEN\TRAMADOL [Suspect]
     Active Substance: ACETAMINOPHEN\TRAMADOL
     Indication: Arthralgia
  4. HYDROCORTISONE [Concomitant]
     Active Substance: HYDROCORTISONE\HYDROCORTISONE ACETATE
     Indication: Systemic lupus erythematosus
     Route: 042
  5. PHENIRAMINE MALEATE [Concomitant]
     Active Substance: PHENIRAMINE MALEATE
     Indication: Systemic lupus erythematosus
     Dosage: 1 AMPOULE
  6. EPINEPHRINE [Concomitant]
     Active Substance: EPINEPHRINE
     Indication: Systemic lupus erythematosus

REACTIONS (3)
  - Drug ineffective [Unknown]
  - Angioedema [Fatal]
  - Obstructive airways disorder [Fatal]
